FAERS Safety Report 10570273 (Version 1)
Quarter: 2014Q4

REPORT INFORMATION
  Report Type: Spontaneous
  Country: US (occurrence: None)
  Receive Date: 20141106
  Receipt Date: 20141106
  Transmission Date: 20150529
  Serious: Yes (Other)
  Sender: FDA-Public Use
  Company Number: None

PATIENT
  Age: 67 Year
  Sex: Female
  Weight: 69.85 kg

DRUGS (5)
  1. CALCIUM [Concomitant]
     Active Substance: CALCIUM
  2. METOPROLOL TARTRATE. [Concomitant]
     Active Substance: METOPROLOL TARTRATE
  3. VITAMIN D [Concomitant]
     Active Substance: CHOLECALCIFEROL
  4. ALENDRONATE SODIUM. [Suspect]
     Active Substance: ALENDRONATE SODIUM
     Indication: BONE DENSITY DECREASED
     Dosage: 70 MG, 1 PILL PER WEEK, MOUTH
     Route: 048
     Dates: start: 20141022, end: 20141022
  5. MULTIPLE VITAMIN [Concomitant]
     Active Substance: VITAMINS

REACTIONS (4)
  - Bone pain [None]
  - Dyspnoea [None]
  - Myalgia [None]
  - Muscle spasms [None]
